FAERS Safety Report 5824794-3 (Version None)
Quarter: 2008Q3

REPORT INFORMATION
  Report Type: 
  Country: None (occurrence: None)
  Receive Date: 20080728
  Receipt Date: 20080721
  Transmission Date: 20090109
  Serious: Yes (Hospitalization)
  Sender: FDA-Public Use
  Company Number: US-ASTRAZENECA-2008UW14449

PATIENT
  Age: 97 Year
  Sex: Female

DRUGS (6)
  1. CRESTOR [Suspect]
     Route: 048
     Dates: start: 20080404
  2. VYTORIN [Concomitant]
     Dosage: 10/80
     Dates: end: 20080401
  3. NIFEDIPINE [Concomitant]
  4. LISINOPRIL [Concomitant]
     Route: 048
  5. HYDROCHLOROTHIAZIDE [Concomitant]
  6. FOSAMAX [Concomitant]

REACTIONS (1)
  - RENAL FAILURE [None]
